FAERS Safety Report 18391363 (Version 1)
Quarter: 2020Q4

REPORT INFORMATION
  Report Type: Spontaneous
  Country: US (occurrence: US)
  Receive Date: 20201016
  Receipt Date: 20201016
  Transmission Date: 20210114
  Serious: Yes (Disabling, Other)
  Sender: FDA-Public Use
  Company Number: US-SA-2020SA282056

PATIENT

DRUGS (3)
  1. LANTUS SOLOSTAR [Suspect]
     Active Substance: INSULIN GLARGINE
     Dosage: ADDITIONALLY 10 IU TAKEN
     Route: 065
  2. LANTUS SOLOSTAR [Suspect]
     Active Substance: INSULIN GLARGINE
     Indication: TYPE 2 DIABETES MELLITUS
     Dosage: 50 IU, QD
     Route: 065
  3. HUMALOG [Concomitant]
     Active Substance: INSULIN LISPRO
     Dosage: UNK

REACTIONS (9)
  - Pulmonary function test decreased [Unknown]
  - Visual impairment [Unknown]
  - Intentional product misuse [Unknown]
  - Dyspnoea [Unknown]
  - Brain operation [Unknown]
  - Wrong technique in device usage process [Unknown]
  - Paralysis [Unknown]
  - Nerve injury [Unknown]
  - Disability [Unknown]
